FAERS Safety Report 9014723 (Version 1)
Quarter: 2013Q1

REPORT INFORMATION
  Report Type: Spontaneous
  Country: BR (occurrence: BR)
  Receive Date: 20130115
  Receipt Date: 20130115
  Transmission Date: 20140127
  Serious: Yes (Other)
  Sender: FDA-Public Use
  Company Number: BR-PFIZER INC-2013001277

PATIENT
  Sex: Female

DRUGS (2)
  1. DEPO-PROVERA [Suspect]
     Indication: CONTRACEPTION
     Dosage: 150 MG, UNK
     Dates: start: 2005, end: 200811
  2. DEPO-PROVERA [Suspect]
     Dosage: 150 MG, EVERY 3 MONTHS
     Dates: start: 20121201

REACTIONS (6)
  - Uterine disorder [Unknown]
  - Hyperthyroidism [Unknown]
  - Fall [Unknown]
  - Hip fracture [Unknown]
  - Weight increased [Unknown]
  - Inappropriate schedule of drug administration [Unknown]
